FAERS Safety Report 4961354-0 (Version None)
Quarter: 2006Q2

REPORT INFORMATION
  Report Type: 
  Country: None (occurrence: None)
  Receive Date: 20060403
  Receipt Date: 20060222
  Transmission Date: 20061013
  Serious: Yes (Other)
  Sender: FDA-Public Use
  Company Number: US-AMGEN-US169889

PATIENT
  Age: 71 Year
  Sex: Female

DRUGS (3)
  1. ENBREL [Suspect]
     Indication: RHEUMATOID ARTHRITIS
     Dates: start: 19990201
  2. PLAQUENIL [Concomitant]
  3. METHYLPREDNISOLONE [Concomitant]

REACTIONS (3)
  - AGRANULOCYTOSIS [None]
  - ARTHROPATHY [None]
  - CELLULITIS [None]
